FAERS Safety Report 9678276 (Version 1)
Quarter: 2013Q4

REPORT INFORMATION
  Report Type: Spontaneous
  Country: US (occurrence: None)
  Receive Date: 20131107
  Receipt Date: 20131107
  Transmission Date: 20140711
  Serious: No
  Sender: FDA-Public Use
  Company Number: None

PATIENT
  Age: 17 Year
  Sex: Female
  Weight: 78.02 kg

DRUGS (1)
  1. DOXYCYCLINE HYCLATE [Suspect]
     Indication: ACNE
     Route: 048
     Dates: start: 20130920

REACTIONS (2)
  - Drug intolerance [None]
  - Abdominal discomfort [None]
